FAERS Safety Report 7363663-7 (Version None)
Quarter: 2011Q1

REPORT INFORMATION
  Report Type: 
  Country: None (occurrence: None)
  Receive Date: 20110321
  Receipt Date: 20110317
  Transmission Date: 20110831
  Serious: Yes (Hospitalization)
  Sender: FDA-Public Use
  Company Number: SE-BAXTER-2011BH006704

PATIENT
  Age: 65 Year
  Sex: Male

DRUGS (6)
  1. GAMMAGARD LIQUID [Suspect]
     Indication: OFF LABEL USE
     Route: 042
     Dates: start: 20100901, end: 20100901
  2. SOLU-MEDROL [Concomitant]
  3. SANDIMMUNE [Suspect]
     Indication: PRODUCT USED FOR UNKNOWN INDICATION
  4. MESTINON [Concomitant]
  5. GAMMAGARD LIQUID [Suspect]
     Indication: MYASTHENIA GRAVIS
     Route: 042
     Dates: start: 20100901, end: 20100901
  6. NEOSTIGMINE [Concomitant]

REACTIONS (1)
  - HAEMOLYTIC ANAEMIA [None]
